FAERS Safety Report 20177492 (Version 1)
Quarter: 2021Q4

REPORT INFORMATION
  Report Type: Spontaneous
  Country: US (occurrence: US)
  Receive Date: 20211213
  Receipt Date: 20211213
  Transmission Date: 20220303
  Serious: Yes (Hospitalization, Other)
  Sender: FDA-Public Use
  Company Number: US-LUNDBECK-DKLU3042080

PATIENT
  Age: 8 Year
  Sex: Male

DRUGS (2)
  1. SABRIL [Suspect]
     Active Substance: VIGABATRIN
     Indication: Partial seizures
     Route: 048
     Dates: start: 2017
  2. SABRIL [Suspect]
     Active Substance: VIGABATRIN
     Indication: Simple partial seizures

REACTIONS (1)
  - Seizure [Unknown]
